FAERS Safety Report 15890713 (Version 1)
Quarter: 2019Q1

REPORT INFORMATION
  Report Type: Spontaneous
  Country: FR (occurrence: FR)
  Receive Date: 20190130
  Receipt Date: 20190130
  Transmission Date: 20190417
  Serious: Yes (Life-Threatening, Hospitalization)
  Sender: FDA-Public Use
  Company Number: FR-PFIZER INC-2019037131

PATIENT
  Age: 81 Year
  Sex: Male
  Weight: 79 kg

DRUGS (3)
  1. TAZOCILLINE [Suspect]
     Active Substance: PIPERACILLIN SODIUM\TAZOBACTAM SODIUM
     Indication: LUNG DISORDER
     Dosage: 4 G, EVERY 6 HOURS
     Route: 042
     Dates: start: 20181229, end: 20181230
  2. CLAFORAN [Suspect]
     Active Substance: CEFOTAXIME SODIUM
     Indication: LUNG DISORDER
     Dosage: 2 G, EVERY 6 HOURS
     Route: 042
     Dates: start: 20181229, end: 20181229
  3. TAVANIC [Suspect]
     Active Substance: LEVOFLOXACIN
     Indication: LUNG DISORDER
     Dosage: 500 MG, EVERY12 HOURS
     Route: 042
     Dates: start: 20181229

REACTIONS (3)
  - Proteinuria [Not Recovered/Not Resolved]
  - Renal failure [Not Recovered/Not Resolved]
  - Rash [Recovered/Resolved]

NARRATIVE: CASE EVENT DATE: 20181231
